FAERS Safety Report 5062724-5 (Version None)
Quarter: 2006Q3

REPORT INFORMATION
  Report Type: 
  Country: None (occurrence: None)
  Receive Date: 20060703
  Receipt Date: 20051025
  Transmission Date: 20061208
  Serious: No
  Sender: FDA-Public Use
  Company Number: 2005S1010612

PATIENT
  Age: 47 Year
  Sex: Male

DRUGS (10)
  1. CLOZAPINE [Suspect]
     Indication: SCHIZOAFFECTIVE DISORDER
     Dosage: 400 MG; HS; ORAL
     Route: 048
     Dates: start: 20040415
  2. VALPROIC ACID [Concomitant]
  3. ENALAPRIL MALEATE [Concomitant]
  4. BENZTROPINE MESYLATE [Concomitant]
  5. GEMFIBROZIL [Concomitant]
  6. ATENOLOL [Concomitant]
  7. BRAN [Concomitant]
  8. ACETYLSALICYLIC ACID SRT [Concomitant]
  9. POLCARBOPHIL CALCIUM [Concomitant]
  10. PANTOPRAZOLE SODIUM [Concomitant]

REACTIONS (1)
  - GRANULOCYTOPENIA [None]
